FAERS Safety Report 7069503-8 (Version None)
Quarter: 2010Q4

REPORT INFORMATION
  Report Type: 
  Country: None (occurrence: None)
  Receive Date: 20101028
  Receipt Date: 20100119
  Transmission Date: 20110411
  Serious: No
  Sender: FDA-Public Use
  Company Number: US-WYE-H12778109

PATIENT
  Age: 72 Year
  Sex: Male
  Weight: 77.18 kg

DRUGS (3)
  1. ADVIL COLD AND SINUS [Suspect]
     Indication: SINUS DISORDER
     Route: 048
     Dates: start: 20091221, end: 20091221
  2. NORVASC [Concomitant]
  3. FLOMAX [Concomitant]

REACTIONS (3)
  - CONDITION AGGRAVATED [None]
  - DRUG INEFFECTIVE [None]
  - NASAL CONGESTION [None]
